FAERS Safety Report 4539824-9 (Version None)
Quarter: 2004Q4

REPORT INFORMATION
  Report Type: 
  Country: None (occurrence: None)
  Receive Date: 20041223
  Receipt Date: 20041207
  Transmission Date: 20050328
  Serious: Yes (Other)
  Sender: FDA-Public Use
  Company Number: EM2004-0627

PATIENT
  Age: 9 Year
  Sex: Male

DRUGS (5)
  1. TOBI [Suspect]
     Indication: PSEUDOMONAS INFECTION
     Dosage: 300 MG, BID, INHALATION
     Route: 055
     Dates: start: 20000101
  2. THYROXINE SODIUM (LEVOTHYROXINE SODIUM) [Concomitant]
  3. CORTEF [Concomitant]
  4. HUMAN GROWTH  HORMONE, RECOMBINANT (SOMATROPIN) [Concomitant]
  5. PHENOBARBITAL TAB [Concomitant]

REACTIONS (4)
  - CONVULSION [None]
  - DYSPHONIA [None]
  - PHARYNGOLARYNGEAL PAIN [None]
  - STOMATITIS [None]
